FAERS Safety Report 6649737-4 (Version None)
Quarter: 2010Q1

REPORT INFORMATION
  Report Type: 
  Country: None (occurrence: None)
  Receive Date: 20100324
  Receipt Date: 20100324
  Transmission Date: 20100710
  Serious: Yes (Hospitalization)
  Sender: FDA-Public Use
  Company Number: None

PATIENT
  Sex: Male
  Weight: 109.7 kg

DRUGS (2)
  1. TEMOZOLOMIDE [Suspect]
     Indication: ACUTE MYELOID LEUKAEMIA
     Dosage: 100 MG/M2 QD PO 200 MG/M2 QD PO
     Route: 048
     Dates: start: 20091021, end: 20091103
  2. TEMOZOLOMIDE [Suspect]
     Indication: ACUTE MYELOID LEUKAEMIA
     Dosage: 100 MG/M2 QD PO 200 MG/M2 QD PO
     Route: 048
     Dates: start: 20091104, end: 20091110

REACTIONS (5)
  - COLD SWEAT [None]
  - FEBRILE NEUTROPENIA [None]
  - NO THERAPEUTIC RESPONSE [None]
  - OEDEMA [None]
  - TONGUE ULCERATION [None]
